FAERS Safety Report 9614410 (Version 1)
Quarter: 2013Q4

REPORT INFORMATION
  Report Type: Spontaneous
  Country: US (occurrence: None)
  Receive Date: 20131007
  Receipt Date: 20131007
  Transmission Date: 20140711
  Serious: Yes (Hospitalization)
  Sender: FDA-Public Use
  Company Number: None

PATIENT
  Age: 59 Year
  Sex: Male

DRUGS (2)
  1. TRAMADOL [Suspect]
     Indication: PAIN
     Route: 048
     Dates: start: 20130826, end: 20130829
  2. QUETIAPINE [Suspect]
     Indication: BIPOLAR I DISORDER
     Route: 048
     Dates: start: 20130826, end: 20130829

REACTIONS (5)
  - Incorrect dose administered [None]
  - Amnesia [None]
  - Sedation [None]
  - Bradycardia [None]
  - Somnolence [None]
